FAERS Safety Report 25356678 (Version 1)
Quarter: 2025Q2

REPORT INFORMATION
  Report Type: Spontaneous
  Country: US (occurrence: US)
  Receive Date: 20250526
  Receipt Date: 20250526
  Transmission Date: 20250717
  Serious: No
  Sender: CSL BEHRING
  Company Number: US-CARA THERAPEUTICS, INC.-2023-00205-US

PATIENT
  Age: 76 Year
  Sex: Female

DRUGS (1)
  1. KORSUVA [Suspect]
     Active Substance: DIFELIKEFALIN ACETATE
     Indication: Product used for unknown indication
     Route: 042

REACTIONS (1)
  - Hyperglycaemia [Recovering/Resolving]
